FAERS Safety Report 8559230 (Version 6)
Quarter: 2013Q4

REPORT INFORMATION
  Report Type: Report from Study
  Country: US (occurrence: US)
  Receive Date: 20120511
  Receipt Date: 20131125
  Transmission Date: 20140711
  Serious: Yes (Hospitalization)
  Sender: FDA-Public Use
  Company Number: US-ACTELION-A-US2012-65350

PATIENT
  Age: 50 Year
  Sex: Male

DRUGS (6)
  1. TRACLEER [Suspect]
     Indication: PULMONARY ARTERIAL HYPERTENSION
     Dosage: 125 MG, BID
     Route: 048
     Dates: start: 201004, end: 201304
  2. TRACLEER [Suspect]
     Dosage: UNK
     Route: 048
     Dates: start: 200603
  3. TRACLEER [Suspect]
     Dosage: 62.5 MG, BID
     Route: 048
     Dates: start: 201003, end: 201004
  4. PROAIR HFA [Concomitant]
     Dosage: UNK
  5. SYMBICORT [Concomitant]
     Dosage: 160/4.6MG 2 PUFF QPM
     Dates: start: 2013
  6. OXYGEN [Concomitant]

REACTIONS (12)
  - Acute hepatic failure [Not Recovered/Not Resolved]
  - Hepatic cirrhosis [Not Recovered/Not Resolved]
  - Ascites [Recovering/Resolving]
  - Chest pain [Recovering/Resolving]
  - Abdominal pain [Recovering/Resolving]
  - Abdominal distension [Recovering/Resolving]
  - Dyspnoea [Recovering/Resolving]
  - Cervical spinal stenosis [Unknown]
  - Splenomegaly [Unknown]
  - Cardiomegaly [Unknown]
  - Oxygen saturation decreased [Unknown]
  - Hepatomegaly [Unknown]
